FAERS Safety Report 20007057 (Version 2)
Quarter: 2022Q4

REPORT INFORMATION
  Report Type: Spontaneous
  Country: MY (occurrence: MY)
  Receive Date: 20211028
  Receipt Date: 20221010
  Transmission Date: 20230113
  Serious: Yes (Life-Threatening, Hospitalization, Other)
  Sender: FDA-Public Use
  Company Number: MY-CIPLA LTD.-2021MY07076

PATIENT
  Age: 52 Year
  Sex: Female

DRUGS (6)
  1. EPIRUBICIN [Suspect]
     Active Substance: EPIRUBICIN
     Indication: Invasive breast carcinoma
     Dosage: UNK, 6 CYCLES
     Route: 065
  2. EPIRUBICIN [Suspect]
     Active Substance: EPIRUBICIN
     Indication: Metastases to lung
  3. FLUOROURACIL [Suspect]
     Active Substance: FLUOROURACIL
     Indication: Invasive breast carcinoma
     Dosage: UNK, 6 CYCLES
     Route: 065
  4. FLUOROURACIL [Suspect]
     Active Substance: FLUOROURACIL
     Indication: Metastases to lung
  5. CYCLOPHOSPHAMIDE [Suspect]
     Active Substance: CYCLOPHOSPHAMIDE
     Indication: Invasive breast carcinoma
     Dosage: UNK, 6 CYCLES
     Route: 065
  6. CYCLOPHOSPHAMIDE [Suspect]
     Active Substance: CYCLOPHOSPHAMIDE
     Indication: Metastases to lung

REACTIONS (2)
  - Hepatitis B [Not Recovered/Not Resolved]
  - Hepatitis B reactivation [Not Recovered/Not Resolved]
